FAERS Safety Report 16127011 (Version 1)
Quarter: 2019Q2

REPORT INFORMATION
  Report Type: Spontaneous
  Country: US (occurrence: US)
  Receive Date: 20190327
  Receipt Date: 20190327
  Transmission Date: 20190711
  Serious: Yes (Hospitalization)
  Sender: FDA-Public Use
  Company Number: None

PATIENT
  Sex: Female

DRUGS (6)
  1. ESCITALOPRAM TAB 20MG [Concomitant]
  2. SYNTHROID [Concomitant]
     Active Substance: LEVOTHYROXINE SODIUM
  3. CAPECITABINE. [Suspect]
     Active Substance: CAPECITABINE
     Indication: BREAST CANCER
     Route: 048
     Dates: start: 20180427
  4. ALPRAZOLAM TAB 0.5MG ER [Concomitant]
  5. ASPIRIN LOW TAB 81 MG EC [Concomitant]
  6. CYMBALTA CAP 20MG [Concomitant]

REACTIONS (2)
  - Brain operation [None]
  - Therapy cessation [None]
